FAERS Safety Report 21373431 (Version 1)
Quarter: 2022Q3

REPORT INFORMATION
  Report Type: Spontaneous
  Country: US (occurrence: US)
  Receive Date: 20220925
  Receipt Date: 20220925
  Transmission Date: 20221026
  Serious: No
  Sender: FDA-Public Use
  Company Number: US-JNJFOC-20220938291

PATIENT
  Age: 74 Year
  Sex: Male

DRUGS (1)
  1. ERLEADA [Suspect]
     Active Substance: APALUTAMIDE
     Indication: Product used for unknown indication
     Dosage: TAKE 4 TABLETS BY MOUTH ONCE DAILY AS DIRECTED
     Route: 048

REACTIONS (1)
  - Yellow skin [Unknown]

NARRATIVE: CASE EVENT DATE: 20220830
